FAERS Safety Report 5673512-0 (Version None)
Quarter: 2008Q1

REPORT INFORMATION
  Report Type: 
  Country: None (occurrence: None)
  Receive Date: 20080319
  Receipt Date: 20080314
  Transmission Date: 20080703
  Serious: Yes (Other)
  Sender: FDA-Public Use
  Company Number: FR-ABBOTT-08P-056-0442605-00

PATIENT
  Age: 59 Year
  Sex: Female

DRUGS (3)
  1. NAXY TABLETS [Suspect]
     Indication: COUGH
     Route: 048
     Dates: start: 20080212, end: 20080214
  2. NAXY TABLETS [Suspect]
     Indication: LUNG DISORDER
  3. BEPRIDIL HYDROCHLORIDE MONOHYDRATE [Suspect]
     Indication: ANGINA PECTORIS
     Route: 048
     Dates: start: 20030715, end: 20080215

REACTIONS (1)
  - MEDICATION ERROR [None]
